FAERS Safety Report 5243114-9 (Version None)
Quarter: 2007Q1

REPORT INFORMATION
  Report Type: 
  Country: None (occurrence: None)
  Receive Date: 20070221
  Receipt Date: 20070216
  Transmission Date: 20070707
  Serious: Yes (Hospitalization, Other)
  Sender: FDA-Public Use
  Company Number: BE-ABBOTT-06P-013-0342970-00

PATIENT
  Sex: Female

DRUGS (10)
  1. HUMIRA [Suspect]
     Indication: RHEUMATOID ARTHRITIS
     Dates: start: 20040501, end: 20051001
  2. FLOXACILLIN SODIUM [Suspect]
     Indication: WOUND DRAINAGE
     Dates: start: 20051018
  3. AUGMENTIN '125' [Suspect]
     Indication: WOUND DRAINAGE
     Dates: start: 20051024
  4. LEFLUNOMIDE [Concomitant]
     Indication: RHEUMATOID ARTHRITIS
     Dates: start: 20030101
  5. PREDNISOLONE [Concomitant]
     Indication: RHEUMATOID ARTHRITIS
  6. NAPROXEN [Concomitant]
     Indication: RHEUMATOID ARTHRITIS
  7. DEANXIT [Concomitant]
     Indication: DRUG USE FOR UNKNOWN INDICATION
  8. SIPRALEXA [Concomitant]
     Indication: DRUG USE FOR UNKNOWN INDICATION
  9. CELECOXIB [Concomitant]
     Indication: DRUG USE FOR UNKNOWN INDICATION
  10. LORMETAZEPAM [Concomitant]
     Indication: DRUG USE FOR UNKNOWN INDICATION

REACTIONS (8)
  - DIARRHOEA [None]
  - DYSSTASIA [None]
  - ESCHERICHIA INFECTION [None]
  - NOCTURIA [None]
  - OSTEITIS [None]
  - POLLAKIURIA [None]
  - URGE INCONTINENCE [None]
  - WOUND DRAINAGE [None]
